FAERS Safety Report 5045897-X (Version None)
Quarter: 2006Q2

REPORT INFORMATION
  Report Type: 
  Country: None (occurrence: None)
  Receive Date: 20060629
  Receipt Date: 20060620
  Transmission Date: 20061013
  Serious: Yes (Hospitalization)
  Sender: FDA-Public Use
  Company Number: 2006001499

PATIENT
  Age: 78 Year
  Sex: Male

DRUGS (5)
  1. EMCYT [Suspect]
     Indication: PROSTATE CANCER
     Dosage: 840 MG (280 MG, THREE TIMES DAILY FOR 14 DAYS), ORAL
     Route: 048
     Dates: end: 20020930
  2. ETOPOSIDE [Suspect]
     Indication: PROSTATE CANCER
     Dosage: 100 MG/M2 (50 MG/M2, TWICE DAILY FOR 14 DAYS), ORAL
     Route: 048
     Dates: end: 20020930
  3. TAXOL [Suspect]
     Indication: PROSTATE CANCER
     Dosage: 135 MG/M2 (135 MG/M2, DAY 2, EVERY 21 DAYS), INTRAVENOUS
     Route: 042
     Dates: end: 20020930
  4. WARFARIN SODIUM [Concomitant]
  5. LASIX [Concomitant]

REACTIONS (7)
  - ATRIAL FIBRILLATION [None]
  - BLOOD UREA INCREASED [None]
  - DIZZINESS [None]
  - DYSPNOEA [None]
  - OEDEMA [None]
  - OEDEMA PERIPHERAL [None]
  - PROTHROMBIN TIME PROLONGED [None]
